FAERS Safety Report 4316597-6 (Version None)
Quarter: 2004Q1

REPORT INFORMATION
  Report Type: 
  Country: None (occurrence: None)
  Receive Date: 20040312
  Receipt Date: 20040128
  Transmission Date: 20041129
  Serious: No
  Sender: FDA-Public Use
  Company Number: 7479

PATIENT
  Age: 71 Year
  Sex: Female

DRUGS (2)
  1. PAMIDRONATE DISODIUM [Suspect]
     Indication: MULTIPLE MYELOMA
     Dosage: 350 MG PER_CYCLE/50 MG MONTLY
     Route: 042
     Dates: start: 19990701
  2. THALIDOMIDE [Concomitant]

REACTIONS (4)
  - HYDRONEPHROSIS [None]
  - NEPHROTIC SYNDROME [None]
  - OEDEMA PERIPHERAL [None]
  - RENAL INTERSTITIAL FIBROSIS [None]
